FAERS Safety Report 13598722 (Version 12)
Quarter: 2018Q3

REPORT INFORMATION
  Report Type: Spontaneous
  Country: US (occurrence: US)
  Receive Date: 20170531
  Receipt Date: 20180713
  Transmission Date: 20181010
  Serious: Yes (Other)
  Sender: FDA-Public Use
  Company Number: US-PFIZER INC-2017236442

PATIENT
  Age: 13 Year
  Sex: Male
  Weight: 48 kg

DRUGS (5)
  1. GENOTROPIN [Suspect]
     Active Substance: SOMATROPIN
     Indication: GROWTH HORMONE DEFICIENCY
     Dosage: UNK
  2. GENOTROPIN [Suspect]
     Active Substance: SOMATROPIN
     Indication: GROWTH HORMONE DEFICIENCY
     Dosage: 2.8 MG, 1X/DAY (AT NIGHT BEFORE BED)
     Route: 058
     Dates: start: 20170527
  3. GENOTROPIN [Suspect]
     Active Substance: SOMATROPIN
     Dosage: UNK
  4. GENOTROPIN [Suspect]
     Active Substance: SOMATROPIN
     Dosage: 2.5 MG, 1X/DAY
     Route: 058
     Dates: start: 201705
  5. GENOTROPIN [Suspect]
     Active Substance: SOMATROPIN
     Indication: HYPOPITUITARISM
     Dosage: 2.2 MG, DAILY
     Route: 058
     Dates: start: 20170527

REACTIONS (6)
  - Drug dose omission [Unknown]
  - Autism spectrum disorder [Unknown]
  - Device malfunction [Unknown]
  - Pallor [Unknown]
  - Weight decreased [Unknown]
  - Fatigue [Unknown]
